FAERS Safety Report 7475389-X (Version None)
Quarter: 2011Q2

REPORT INFORMATION
  Report Type: 
  Country: None (occurrence: None)
  Receive Date: 20110512
  Receipt Date: 20110422
  Transmission Date: 20111010
  Serious: No
  Sender: FDA-Public Use
  Company Number: US-B.I. PHARMACEUTICALS,INC./RIDGEFIELD-2011-BP-07798BP

PATIENT
  Age: 76 Year
  Sex: Male

DRUGS (9)
  1. MECLIZINE [Concomitant]
     Indication: VERTIGO
  2. DILTIAZEM [Concomitant]
     Indication: HYPERTENSION
  3. TRIAMTERENE [Concomitant]
     Indication: OEDEMA PERIPHERAL
  4. SAW PALMETTO [Concomitant]
     Indication: BENIGN PROSTATIC HYPERPLASIA
  5. PRADAXA [Suspect]
     Indication: CEREBROVASCULAR ACCIDENT PROPHYLAXIS
  6. PRADAXA [Suspect]
     Indication: ANTICOAGULANT THERAPY
  7. NEURO OPTIMISER [Concomitant]
     Indication: AMNESIA
  8. PRADAXA [Suspect]
     Indication: ATRIAL FIBRILLATION
     Dosage: 300 MG
     Route: 048
     Dates: start: 20101201
  9. PRILOSEC OTC [Concomitant]
     Indication: GASTROOESOPHAGEAL REFLUX DISEASE

REACTIONS (4)
  - CONTUSION [None]
  - DIZZINESS [None]
  - ASTHENIA [None]
  - ABDOMINAL PAIN UPPER [None]
